FAERS Safety Report 7591898-7 (Version None)
Quarter: 2011Q3

REPORT INFORMATION
  Report Type: 
  Country: None (occurrence: None)
  Receive Date: 20110706
  Receipt Date: 20110628
  Transmission Date: 20111222
  Serious: Yes (Life-Threatening)
  Sender: FDA-Public Use
  Company Number: DK-AMGEN-DNKCT2011033447

PATIENT
  Age: 61 Year
  Sex: Female

DRUGS (3)
  1. METHOTREXAT                        /00113801/ [Concomitant]
     Dosage: UNK
     Route: 048
     Dates: start: 20090514, end: 20091028
  2. ETANERCEPT [Suspect]
     Indication: RHEUMATOID ARTHRITIS
     Dosage: 50 MG, EVERY OTHER WEEK
     Dates: start: 20090514
  3. REMICADE [Concomitant]
     Dosage: START DATE: 200 MG WEEK 0, 2, 6, +8. STOP DATE/LATEST:14MAY2009 200 MG 0, 2, 6, +8.
     Dates: start: 20090205, end: 20090514

REACTIONS (1)
  - ILEUS [None]
